FAERS Safety Report 12144466 (Version 1)
Quarter: 2016Q1

REPORT INFORMATION
  Report Type: Spontaneous
  Country: US (occurrence: US)
  Receive Date: 20160304
  Receipt Date: 20160304
  Transmission Date: 20160526
  Serious: No
  Sender: FDA-Public Use
  Company Number: US-ASTRAZENECA-2016SE21688

PATIENT
  Sex: Female

DRUGS (2)
  1. VITAMIN C [Suspect]
     Active Substance: ASCORBIC ACID
     Route: 065
  2. NEXIUM 24HR [Suspect]
     Active Substance: ESOMEPRAZOLE MAGNESIUM
     Route: 048

REACTIONS (2)
  - Drug ineffective [Unknown]
  - Burning sensation [Unknown]
